FAERS Safety Report 4342193-0 (Version None)
Quarter: 2004Q2

REPORT INFORMATION
  Report Type: 
  Country: None (occurrence: None)
  Receive Date: 20040409
  Receipt Date: 20031215
  Transmission Date: 20050107
  Serious: Yes (Death)
  Sender: FDA-Public Use
  Company Number: 03P-163-0245108-00

PATIENT
  Age: 22 Year
  Sex: Male

DRUGS (2)
  1. DEPAKOTE [Suspect]
  2. METHADONE [Suspect]

REACTIONS (1)
  - DEATH [None]
